FAERS Safety Report 8416423-X (Version None)
Quarter: 2012Q2

REPORT INFORMATION
  Report Type: 
  Country: None (occurrence: None)
  Receive Date: 20120606
  Receipt Date: 20120530
  Transmission Date: 20120825
  Serious: Yes (Hospitalization)
  Sender: FDA-Public Use
  Company Number: JP-ASTRAZENECA-2012SE36636

PATIENT
  Age: 41 Year
  Sex: Male

DRUGS (5)
  1. CRESTOR [Suspect]
     Indication: HYPERLIPIDAEMIA
     Route: 048
     Dates: start: 20110929, end: 20120501
  2. NIFEDIPINE [Concomitant]
     Route: 048
     Dates: start: 20120312, end: 20120501
  3. DIOVAN [Concomitant]
     Route: 048
     Dates: start: 20110701, end: 20120501
  4. RASILEZ [Concomitant]
     Route: 065
     Dates: end: 20120312
  5. NIFEDIPINE [Concomitant]
     Route: 048
     Dates: start: 20110701, end: 20120311

REACTIONS (1)
  - LIVER DISORDER [None]
